FAERS Safety Report 6804668-1 (Version None)
Quarter: 2010Q2

REPORT INFORMATION
  Report Type: 
  Country: None (occurrence: None)
  Receive Date: 20100628
  Receipt Date: 20070917
  Transmission Date: 20101027
  Serious: No
  Sender: FDA-Public Use
  Company Number: US-PFIZER INC-2007034351

PATIENT
  Sex: Female
  Weight: 68.04 kg

DRUGS (6)
  1. XALATAN [Suspect]
     Indication: GLAUCOMA
     Dosage: QHS: EVERY DAY
     Dates: start: 20070201
  2. COZAAR [Concomitant]
  3. LISINOPRIL [Concomitant]
  4. TOPROL-XL [Concomitant]
  5. ACETYLSALICYLIC ACID [Concomitant]
  6. ALLERGY MEDICATION [Concomitant]

REACTIONS (1)
  - HAIR GROWTH ABNORMAL [None]
